FAERS Safety Report 8604414 (Version 3)
Quarter: 2012Q4

REPORT INFORMATION
  Report Type: 
  Country: US (occurrence: US)
  Receive Date: 20120608
  Receipt Date: 20121207
  Transmission Date: 20130627
  Serious: No
  Sender: FDA-Public Use
  Company Number: US-PFIZER INC-2012135085

PATIENT
  Age: 56 Year
  Sex: Female
  Weight: 99.8 kg

DRUGS (14)
  1. LIPITOR [Suspect]
     Indication: HYPERLIPIDEMIA
     Dosage: 10 mg, UNK
     Dates: start: 20120428
  2. LIPITOR [Suspect]
     Dosage: one tablet daily
     Route: 048
     Dates: start: 20120508, end: 201205
  3. ASPIRIN [Concomitant]
     Dosage: 81 mg, daily
     Route: 048
  4. BENAZEPRIL HYDROCHLORIDE [Concomitant]
     Dosage: 40 mg, daily
     Route: 048
  5. FLONASE [Concomitant]
     Dosage: 50 ug (1 spray) in each nostril, daily
     Route: 045
  6. FLOVENT [Concomitant]
     Dosage: 110 ug,(1 puff) daily
     Route: 055
  7. FLOVENT [Concomitant]
     Dosage: 44 ug, (1 puff) daily
     Route: 055
     Dates: end: 20121017
  8. GLUCOSAMINE WITH MSM [Concomitant]
     Dosage: 1500 mg, 3 tablets daily
     Route: 048
  9. HYDROCHLOROTHIAZIDE [Concomitant]
     Dosage: 12.5 mg, daily
     Route: 048
  10. JANUVIA [Concomitant]
     Dosage: 100 mg, daily
     Route: 048
  11. LANTUS [Concomitant]
     Dosage: (100 Unit/ml (3 Ml) inject 35 units SQ twice daily)
     Route: 058
  12. METFORMIN HYDROCHLORIDE [Concomitant]
     Dosage: 500 mg, (2 tablets) twice a day
     Route: 048
  13. POTASSIUM GLUCONATE [Concomitant]
     Dosage: 595 mg, daily
     Route: 048
  14. VITAMIN D [Concomitant]
     Dosage: (2000 Unit 1 tablet by mouth daily)
     Route: 048

REACTIONS (10)
  - Pain in extremity [Not Recovered/Not Resolved]
  - Back pain [Not Recovered/Not Resolved]
  - Headache [Unknown]
  - Muscular weakness [Not Recovered/Not Resolved]
  - Myalgia [Recovered/Resolved]
  - Nausea [Unknown]
  - Palpitations [Unknown]
  - Fatigue [Unknown]
  - Hypoaesthesia [Unknown]
  - Paraesthesia [Unknown]
